FAERS Safety Report 7404404-4 (Version None)
Quarter: 2011Q2

REPORT INFORMATION
  Report Type: 
  Country: None (occurrence: None)
  Receive Date: 20110408
  Receipt Date: 20110328
  Transmission Date: 20111010
  Serious: Yes (Other)
  Sender: FDA-Public Use
  Company Number: US-BAYER-2011-026423

PATIENT

DRUGS (3)
  1. PROMACTA [Suspect]
     Dosage: 150 MG, QD
     Route: 048
  2. PROMACTA [Suspect]
     Indication: PRODUCT USED FOR UNKNOWN INDICATION
     Dosage: 50 MG, QD
     Route: 048
  3. MOXIFLOXACIN ORAL [Suspect]
     Indication: PRODUCT USED FOR UNKNOWN INDICATION
     Dosage: 400 MG, QD, ON DAY 5
     Route: 048

REACTIONS (1)
  - VENTRICULAR EXTRASYSTOLES [None]
